FAERS Safety Report 9606484 (Version 1)
Quarter: 2013Q4

REPORT INFORMATION
  Report Type: Spontaneous
  Country: US (occurrence: US)
  Receive Date: 20131008
  Receipt Date: 20131008
  Transmission Date: 20140711
  Serious: No
  Sender: FDA-Public Use
  Company Number: US-AMGEN-USASP2013055820

PATIENT
  Sex: Female
  Weight: 44.46 kg

DRUGS (3)
  1. PROLIA [Suspect]
     Indication: PRODUCT USED FOR UNKNOWN INDICATION
     Dosage: UNK
     Route: 065
  2. CALCIUM [Concomitant]
     Route: 065
  3. VITAMIN D                          /00107901/ [Concomitant]
     Route: 065

REACTIONS (1)
  - Feeling abnormal [Unknown]
